FAERS Safety Report 6314367-0 (Version None)
Quarter: 2009Q3

REPORT INFORMATION
  Report Type: 
  Country: None (occurrence: None)
  Receive Date: 20090819
  Receipt Date: 20090809
  Transmission Date: 20100115
  Serious: Yes (Other)
  Sender: FDA-Public Use
  Company Number: US-WYE-H10513309

PATIENT
  Age: 16 Year
  Sex: Male

DRUGS (3)
  1. EFFEXOR XR [Suspect]
     Route: 048
  2. TRAZODONE HCL [Concomitant]
     Dosage: 25 MG HS PRN
     Route: 048
  3. RISPERIDONE [Concomitant]
     Route: 048

REACTIONS (1)
  - GLAUCOMA [None]
